FAERS Safety Report 9643907 (Version 2)
Quarter: 2014Q2

REPORT INFORMATION
  Report Type: Spontaneous
  Country: US (occurrence: US)
  Receive Date: 20131024
  Receipt Date: 20140610
  Transmission Date: 20141212
  Serious: Yes (Death, Other)
  Sender: FDA-Public Use
  Company Number: US-INCYTE CORPORATION-2013IN002471

PATIENT
  Age: 58 Year
  Sex: Female

DRUGS (4)
  1. JAKAFI [Suspect]
     Indication: MYELOFIBROSIS
     Dosage: 15 MG, BID
     Route: 048
     Dates: start: 2011, end: 201306
  2. JAKAFI [Suspect]
     Indication: SPLENOMEGALY
  3. HYDROXYCARBAMIDE (NGX) [Suspect]
     Indication: SPLENOMEGALY
     Dosage: UNKNOWN
     Route: 065
  4. DECITABINE [Suspect]
     Indication: PRODUCT USED FOR UNKNOWN INDICATION
     Dosage: UNKNOWN
     Route: 065

REACTIONS (5)
  - Myelofibrosis [Fatal]
  - Disease progression [Fatal]
  - Acute myeloid leukaemia [Unknown]
  - Malignant transformation [Unknown]
  - Leukaemia [Unknown]
